FAERS Safety Report 24631136 (Version 1)
Quarter: 2024Q4

REPORT INFORMATION
  Report Type: Spontaneous
  Country: US (occurrence: None)
  Receive Date: 20241117
  Receipt Date: 20241117
  Transmission Date: 20250115
  Serious: Yes (Hospitalization)
  Sender: Public
  Company Number: None

PATIENT
  Age: 40 Year
  Sex: Female
  Weight: 67.5 kg

DRUGS (3)
  1. GADOBENATE DIMEGLUMINE [Suspect]
     Active Substance: GADOBENATE DIMEGLUMINE
     Indication: Investigation
     Dosage: 1 INJECTION ONCE INTRAVEONUS
     Route: 042
  2. Adderall ER [Concomitant]
  3. GABAPENTIN [Concomitant]
     Active Substance: GABAPENTIN

REACTIONS (12)
  - Documented hypersensitivity to administered product [None]
  - Flushing [None]
  - Back disorder [None]
  - Pruritus [None]
  - Paraesthesia [None]
  - Erythema [None]
  - Erythema [None]
  - Skin burning sensation [None]
  - Urticaria [None]
  - Tremor [None]
  - Shock [None]
  - Skin discolouration [None]

NARRATIVE: CASE EVENT DATE: 20241115
